FAERS Safety Report 7067341-3 (Version None)
Quarter: 2010Q4

REPORT INFORMATION
  Report Type: 
  Country: None (occurrence: None)
  Receive Date: 20101022
  Receipt Date: 20101022
  Transmission Date: 20110411
  Serious: Yes (Other)
  Sender: FDA-Public Use
  Company Number: None

PATIENT
  Sex: Female
  Weight: 98.8842 kg

DRUGS (2)
  1. SEROQUEL [Suspect]
     Indication: BIPOLAR DISORDER
     Dosage: 450 NIGHTLY PO
     Route: 048
  2. SEROQUEL [Suspect]
     Indication: SLEEP DISORDER
     Dosage: 450 NIGHTLY PO
     Route: 048

REACTIONS (5)
  - APTYALISM [None]
  - DENTAL CARIES [None]
  - DRY MOUTH [None]
  - TOOTH EROSION [None]
  - TOOTH LOSS [None]
